FAERS Safety Report 9034006 (Version 1)
Quarter: 2013Q1

REPORT INFORMATION
  Report Type: Spontaneous
  Country: US (occurrence: None)
  Receive Date: 20130116
  Receipt Date: 20130116
  Transmission Date: 20140127
  Serious: No
  Sender: FDA-Public Use
  Company Number: None

PATIENT
  Age: 73 Year
  Sex: Female
  Weight: 61.24 kg

DRUGS (4)
  1. ENBREL ^02 [Suspect]
     Indication: RHEUMATOID ARTHRITIS
     Dosage: 50MG SC  WEEKLY
     Route: 058
     Dates: start: 2002
  2. FOSAMAX [Concomitant]
  3. VERAPAMIL [Concomitant]
  4. ZANTAC [Concomitant]

REACTIONS (1)
  - Lung adenocarcinoma [None]
